FAERS Safety Report 7854602-0 (Version None)
Quarter: 2011Q4

REPORT INFORMATION
  Report Type: 
  Country: None (occurrence: None)
  Receive Date: 20111026
  Receipt Date: 20111012
  Transmission Date: 20120403
  Serious: Yes (Other)
  Sender: FDA-Public Use
  Company Number: IE-MEDIMMUNE-MEDI-0013734

PATIENT
  Sex: Female

DRUGS (6)
  1. ITROXIDE [Concomitant]
  2. SYNAGIS [Suspect]
     Indication: HEART DISEASE CONGENITAL
     Route: 030
     Dates: start: 20111012
  3. ITROXIDE [Concomitant]
  4. OMEPRAZOLE SODIUM [Concomitant]
  5. PROPRANOLOL [Concomitant]
  6. OMEPRAZOLE SODIUM [Concomitant]

REACTIONS (2)
  - PALLOR [None]
  - GREY SYNDROME NEONATAL [None]
